FAERS Safety Report 4413470-X (Version None)
Quarter: 2004Q2

REPORT INFORMATION
  Report Type: 
  Country: None (occurrence: None)
  Receive Date: 20040630
  Receipt Date: 20040324
  Transmission Date: 20050107
  Serious: No
  Sender: FDA-Public Use
  Company Number: 04P-163-0254464-00

PATIENT
  Age: 56 Year
  Sex: Female
  Weight: 67.1324 kg

DRUGS (6)
  1. HUMIRA [Suspect]
     Indication: RHEUMATOID ARTHRITIS
     Dosage: 40 MG 1 IN 2 WK SUBCUTANEOUS
     Route: 058
     Dates: start: 20030501
  2. HYDROCODONE [Concomitant]
  3. METHYLPREDNISOLONE [Concomitant]
  4. CORAL CALCIUM [Concomitant]
  5. TOCOPHEROL CONCENTRATE CAP [Concomitant]
  6. VENLAFAXINE HCL [Concomitant]

REACTIONS (1)
  - INJECTION SITE HAEMORRHAGE [None]
